FAERS Safety Report 7911614-6 (Version None)
Quarter: 2011Q4

REPORT INFORMATION
  Report Type: 
  Country: None (occurrence: None)
  Receive Date: 20111114
  Receipt Date: 20111114
  Transmission Date: 20120403
  Serious: Yes (Other)
  Sender: FDA-Public Use
  Company Number: None

PATIENT
  Sex: Female
  Weight: 68.038 kg

DRUGS (1)
  1. AMOXICILLIN AND CLAVULANATE POTASSIUM [Suspect]
     Indication: URINARY TRACT INFECTION
     Dosage: 875 MG
     Route: 048

REACTIONS (2)
  - DRUG HYPERSENSITIVITY [None]
  - VULVOVAGINAL DISCOMFORT [None]
